FAERS Safety Report 7628823-6 (Version None)
Quarter: 2011Q3

REPORT INFORMATION
  Report Type: 
  Country: None (occurrence: None)
  Receive Date: 20110722
  Receipt Date: 20110620
  Transmission Date: 20111222
  Serious: Yes (Other)
  Sender: FDA-Public Use
  Company Number: US-BAXTER-2010BH003516

PATIENT
  Age: 59 Year
  Sex: Male
  Weight: 84 kg

DRUGS (10)
  1. HEPARIN SODIUM INJECTION [Suspect]
     Route: 042
     Dates: start: 20080223, end: 20080223
  2. CRESTOR [Concomitant]
     Indication: PRODUCT USED FOR UNKNOWN INDICATION
     Route: 065
  3. FENOFIBRATE [Concomitant]
     Indication: PRODUCT USED FOR UNKNOWN INDICATION
     Route: 065
  4. HEPARIN SODIUM INJECTION [Suspect]
     Indication: MESENTERIC ARTERY EMBOLISM
     Route: 065
     Dates: start: 20080215
  5. TOPROL-XL [Concomitant]
     Indication: PRODUCT USED FOR UNKNOWN INDICATION
     Route: 065
  6. FUROSEMIDE [Concomitant]
     Indication: PRODUCT USED FOR UNKNOWN INDICATION
     Route: 065
  7. HEPARIN SODIUM 1,000 UNITS AND SODIUM CHLORIDE 0.9% [Suspect]
     Indication: THROMBOEMBOLECTOMY
     Route: 042
     Dates: start: 20080223
  8. HEPARIN SODIUM 5,000 UNITS IN DEXTROSE 5% [Suspect]
     Indication: SURGERY
     Route: 041
     Dates: start: 20080318
  9. COUMADIN [Suspect]
     Indication: ATRIAL FIBRILLATION
     Route: 065
  10. LOVENOX [Suspect]
     Indication: PROPHYLAXIS
     Route: 065
     Dates: start: 20080201, end: 20080221

REACTIONS (17)
  - ABDOMINAL PAIN [None]
  - BLOOD PRESSURE DECREASED [None]
  - RESPIRATORY FAILURE [None]
  - RASH [None]
  - NAUSEA [None]
  - CHEST PAIN [None]
  - DYSPNOEA [None]
  - ISCHAEMIA [None]
  - LYMPHORRHOEA [None]
  - INCISIONAL HERNIA [None]
  - PULMONARY EMBOLISM [None]
  - MESENTERIC ARTERY THROMBOSIS [None]
  - VOMITING [None]
  - DEEP VEIN THROMBOSIS [None]
  - SEPSIS [None]
  - RENAL FAILURE [None]
  - PYREXIA [None]
